FAERS Safety Report 24294220 (Version 1)
Quarter: 2024Q3

REPORT INFORMATION
  Report Type: Spontaneous
  Country: US (occurrence: US)
  Receive Date: 20240906
  Receipt Date: 20240906
  Transmission Date: 20241017
  Serious: No
  Sender: DOMPE FARMACEUTICI
  Company Number: US-FARMAPROD-202308-202405-1944

PATIENT
  Age: 75 Year
  Sex: Male

DRUGS (16)
  1. OXERVATE [Suspect]
     Active Substance: CENEGERMIN-BKBJ
     Indication: Ulcerative keratitis
     Route: 047
     Dates: start: 20191008, end: 20191113
  2. OXERVATE [Suspect]
     Active Substance: CENEGERMIN-BKBJ
     Route: 047
     Dates: start: 20240517
  3. OXERVATE [Suspect]
     Active Substance: CENEGERMIN-BKBJ
  4. VITAMINS [Concomitant]
     Active Substance: VITAMINS
  5. LATANOPROST [Concomitant]
     Active Substance: LATANOPROST
  6. ZTLIDO [Concomitant]
     Active Substance: LIDOCAINE
     Dosage: ADHESIVE PATCH
  7. PROBIOTICS NOS [Concomitant]
     Active Substance: PROBIOTICS NOS
     Dosage: 10 BILLION CELL
  8. MELATONIN [Concomitant]
     Active Substance: MELATONIN
  9. LOTEMAX [Concomitant]
     Active Substance: LOTEPREDNOL ETABONATE
     Dosage: GEL
  10. ASPIRIN [Concomitant]
     Active Substance: ASPIRIN
  11. ATORVASTATIN CALCIUM [Concomitant]
     Active Substance: ATORVASTATIN CALCIUM
  12. METOPROLOL TARTRATE [Concomitant]
     Active Substance: METOPROLOL TARTRATE
  13. JANUVIA [Concomitant]
     Active Substance: SITAGLIPTIN PHOSPHATE
  14. LOSARTAN POTASSIUM [Concomitant]
     Active Substance: LOSARTAN POTASSIUM
  15. GLIPIZIDE [Concomitant]
     Active Substance: GLIPIZIDE
  16. REFRESH TEARS [Concomitant]
     Active Substance: CARBOXYMETHYLCELLULOSE SODIUM

REACTIONS (4)
  - Eye pain [Not Recovered/Not Resolved]
  - Wrong technique in product usage process [Recovering/Resolving]
  - Eye irritation [Unknown]
  - Therapy interrupted [Unknown]

NARRATIVE: CASE EVENT DATE: 20240517
